FAERS Safety Report 4761152-7 (Version None)
Quarter: 2005Q3

REPORT INFORMATION
  Report Type: 
  Country: None (occurrence: None)
  Receive Date: 20050901
  Receipt Date: 20050822
  Transmission Date: 20060218
  Serious: No
  Sender: FDA-Public Use
  Company Number: 2005S1004834

PATIENT
  Age: 52 Year
  Sex: Female
  Weight: 71.6683 kg

DRUGS (3)
  1. FENTANYL [Suspect]
     Dosage: 50 MCG/HR; Q3D; TDER
     Route: 062
     Dates: start: 20050528, end: 20050530
  2. TEGASEROD MALEATE [Concomitant]
  3. TOPIRAMATE [Concomitant]

REACTIONS (4)
  - DEHYDRATION [None]
  - THERAPEUTIC RESPONSE UNEXPECTED WITH DRUG SUBSTITUTION [None]
  - VOMITING [None]
  - WEIGHT DECREASED [None]
